FAERS Safety Report 7574637-5 (Version None)
Quarter: 2011Q2

REPORT INFORMATION
  Report Type: 
  Country: None (occurrence: None)
  Receive Date: 20110627
  Receipt Date: 20100722
  Transmission Date: 20111010
  Serious: No
  Sender: FDA-Public Use
  Company Number: US-TYCO HEALTHCARE/MALLINCKRODT-T201001720

PATIENT
  Sex: Female

DRUGS (2)
  1. LYRICA [Concomitant]
     Indication: FIBROMYALGIA
     Dosage: 2 CAPSULES BID
     Route: 048
  2. TRAMADOL HCL [Suspect]
     Indication: PAIN
     Dosage: 50 MG, 1 TAB Q 6 HOURS PRN
     Route: 048
     Dates: start: 20100715, end: 20100718

REACTIONS (3)
  - OEDEMA PERIPHERAL [None]
  - PRODUCTIVE COUGH [None]
  - MUSCLE SPASMS [None]
